FAERS Safety Report 17315157 (Version 1)
Quarter: 2020Q1

REPORT INFORMATION
  Report Type: Spontaneous
  Country: AU (occurrence: AU)
  Receive Date: 20200124
  Receipt Date: 20200124
  Transmission Date: 20200409
  Serious: Yes (Hospitalization, Other)
  Sender: FDA-Public Use
  Company Number: AU-APOTEX-2020AP006712

PATIENT
  Age: 59 Year
  Sex: Male

DRUGS (1)
  1. ARIPIPRAZOLE GENERIC HEALTH [Suspect]
     Active Substance: ARIPIPRAZOLE
     Indication: PRODUCT USED FOR UNKNOWN INDICATION
     Dosage: 2.5 MG, TWO DOSES (2.5MG (5MG TABLET CUT IN HALF))
     Route: 048

REACTIONS (4)
  - Wrong technique in product usage process [Unknown]
  - Skull fracture [Recovered/Resolved]
  - Hypotension [Recovered/Resolved]
  - Fall [Recovered/Resolved]
